FAERS Safety Report 6110511-9 (Version None)
Quarter: 2009Q1

REPORT INFORMATION
  Report Type: 
  Country: None (occurrence: None)
  Receive Date: 20090310
  Receipt Date: 20090309
  Transmission Date: 20090719
  Serious: Yes (Death, Life-Threatening, Hospitalization)
  Sender: FDA-Public Use
  Company Number: US-ROXANE LABORATORIES, INC.-2009-RO-00225RO

PATIENT
  Sex: Male
  Weight: 99 kg

DRUGS (13)
  1. PREDNISONE [Suspect]
     Indication: KIDNEY TRANSPLANT REJECTION
     Dosage: 5MG
     Route: 048
     Dates: start: 20081030, end: 20090201
  2. MYCOPHENOLATE MOFETIL [Suspect]
     Indication: KIDNEY TRANSPLANT REJECTION
     Dosage: 2000MG
     Route: 048
     Dates: start: 20081030, end: 20090201
  3. CP-690,550 [Suspect]
     Indication: KIDNEY TRANSPLANT REJECTION
     Dosage: 30MG
     Route: 048
     Dates: start: 20081030, end: 20090201
  4. FAMOTIDINE [Concomitant]
     Dates: start: 20081031, end: 20090130
  5. NYSTATIN [Concomitant]
     Dates: start: 20081031, end: 20090130
  6. BACTRIM [Concomitant]
     Dates: start: 20081031, end: 20090203
  7. AMLODIPINE [Concomitant]
     Dates: start: 20081101
  8. INSULIN GLARGINE [Concomitant]
     Dates: start: 20081101
  9. CARVEDILOL [Concomitant]
     Dates: start: 20081119
  10. LISINOPRIL [Concomitant]
     Dates: start: 20081119
  11. OMEPRAZOLE [Concomitant]
     Dates: start: 20081119
  12. VALCYTE [Concomitant]
     Dates: start: 20081031, end: 20090203
  13. NEUPOGEN [Concomitant]
     Dates: start: 20090130, end: 20090201

REACTIONS (9)
  - BLOOD CREATININE INCREASED [None]
  - CARDIAC ARREST [None]
  - DEHYDRATION [None]
  - ELECTROENCEPHALOGRAM ABNORMAL [None]
  - MALAISE [None]
  - METABOLIC ACIDOSIS [None]
  - NEUTROPENIA [None]
  - PNEUMONIA [None]
  - SEPSIS [None]
